FAERS Safety Report 25976368 (Version 1)
Quarter: 2025Q4

REPORT INFORMATION
  Report Type: Spontaneous
  Country: US (occurrence: None)
  Receive Date: 20251029
  Receipt Date: 20251029
  Transmission Date: 20260117
  Serious: No
  Sender: FDA-CTU
  Company Number: None

PATIENT
  Age: 87 Year
  Sex: Female

DRUGS (1)
  1. XDEMVY [Suspect]
     Active Substance: LOTILANER
     Dosage: 0.25% PERCENT TWICE A DAY OPHTHALMIC
     Route: 047

REACTIONS (3)
  - Facial pain [None]
  - Headache [None]
  - Instillation site pain [None]

NARRATIVE: CASE EVENT DATE: 20251028
